FAERS Safety Report 8959734 (Version 1)
Quarter: 2012Q4

REPORT INFORMATION
  Report Type: 
  Country: US (occurrence: US)
  Receive Date: 20121211
  Receipt Date: 20121211
  Transmission Date: 20130627
  Serious: Yes (Hospitalization, Other)
  Sender: FDA-Public Use
  Company Number: US-JNJFOC-20120614305

PATIENT
  Age: 21 Year
  Sex: Female
  Weight: 56.42 kg

DRUGS (7)
  1. ORTHO EVRA [Suspect]
     Indication: CONTRACEPTION
     Route: 062
     Dates: start: 200803, end: 200903
  2. ETHANOL [Suspect]
     Indication: PRODUCT USED FOR UNKNOWN INDICATION
     Route: 065
  3. CANNABIS SATIVA SUBSP. INDICA TOP [Suspect]
     Indication: PRODUCT USED FOR UNKNOWN INDICATION
     Route: 065
  4. FAMOTIDINE [Concomitant]
     Route: 065
  5. TYLENOL [Concomitant]
     Route: 065
  6. ZOFRAN [Concomitant]
     Route: 065
  7. ATIVAN [Concomitant]
     Route: 065

REACTIONS (3)
  - Post-traumatic stress disorder [Unknown]
  - Cerebrovascular accident [Recovering/Resolving]
  - Depression [Unknown]
